FAERS Safety Report 21209289 (Version 1)
Quarter: 2022Q3

REPORT INFORMATION
  Report Type: Spontaneous
  Country: US (occurrence: US)
  Receive Date: 20220813
  Receipt Date: 20220813
  Transmission Date: 20221026
  Serious: Yes (Other)
  Sender: FDA-Public Use
  Company Number: US-SA-SAC20220809002486

PATIENT
  Age: 63 Year
  Sex: Male

DRUGS (1)
  1. ZANTAC [Suspect]
     Active Substance: RANITIDINE HYDROCHLORIDE
     Indication: Dyspepsia
     Dosage: UNK, QD
     Dates: start: 201501, end: 201701

REACTIONS (1)
  - Prostate cancer stage IV [Unknown]

NARRATIVE: CASE EVENT DATE: 20161201
